FAERS Safety Report 6228843-2 (Version None)
Quarter: 2009Q2

REPORT INFORMATION
  Report Type: 
  Country: None (occurrence: None)
  Receive Date: 20090615
  Receipt Date: 20071227
  Transmission Date: 20091009
  Serious: Yes (Other)
  Sender: FDA-Public Use
  Company Number: US-ASTRAZENECA-2007UW03827

PATIENT
  Age: 11633 Day
  Sex: Female

DRUGS (52)
  1. SEROQUEL [Suspect]
     Indication: BIPOLAR DISORDER
     Route: 048
     Dates: start: 19970101, end: 20050601
  2. SEROQUEL [Suspect]
     Dosage: 25 MG TO 500 MG
     Route: 048
     Dates: start: 20031127
  3. ZYPREXA [Suspect]
     Dates: start: 19880101, end: 19880301
  4. ZYPREXA [Suspect]
     Dosage: 7.5 MG
     Dates: start: 20010507
  5. ORTHO TRI-CYCLEN [Concomitant]
     Dates: start: 19980501
  6. CARISOPRODOL [Concomitant]
     Dosage: 350 MG
     Dates: start: 19990416
  7. PROPOXYPHENE NAPS W/APAP [Concomitant]
     Dosage: 100-650
     Dates: start: 19990921
  8. INDOMETHACIN [Concomitant]
     Dosage: 50 MG
     Dates: start: 19990416
  9. TALACEN [Concomitant]
     Dates: start: 20000225
  10. IBUPROFEN [Concomitant]
     Dosage: 800 MG
     Dates: start: 20010208
  11. ACETAMINOPHEN/COD [Concomitant]
     Dosage: 300/30 MG
     Dates: start: 20010208
  12. TEMAZEPAM [Concomitant]
     Dosage: 15 MG
     Dates: start: 20010409
  13. DIPHENOXYLATE HCL + ATROPINE SULFATE [Concomitant]
     Dates: start: 20010409
  14. FIORICET [Concomitant]
     Dates: start: 20010601
  15. ZOLOFT [Concomitant]
     Dosage: 100 MG TO 200 MG
     Route: 048
     Dates: start: 20010706
  16. CLONAZEPAM [Concomitant]
     Dates: start: 20010706
  17. VISTARIL [Concomitant]
     Dosage: 25 MG
     Dates: start: 20010806
  18. PHENAZOPYRIDINE HCL TAB [Concomitant]
     Dosage: 200 MG
     Dates: start: 20020515
  19. HYDROCODONE BITARTRATE + ACETAMINOPHEN [Concomitant]
     Dosage: 5/500, 7.5/500, 7.5/650
     Dates: start: 20020207
  20. LAMICTAL [Concomitant]
     Dosage: 25 MG TO 200 MG
     Route: 048
     Dates: start: 20030512
  21. PREDNISONE [Concomitant]
     Dosage: 20 MG TO 10 MG, TAPERING DOSE
     Route: 048
     Dates: start: 20031203
  22. ALBUTEROL [Concomitant]
     Dates: start: 20031203
  23. IPRATROPIUM BROMIDE [Concomitant]
     Dates: start: 20031203
  24. LORAZEPAM [Concomitant]
     Route: 048
     Dates: start: 20031209
  25. GLUCOTROL XL [Concomitant]
     Dosage: 2.5 MG, 5 MG, 25 MG
     Route: 048
     Dates: start: 20031209
  26. NAPROXEN [Concomitant]
     Dosage: 500 MG
     Dates: start: 20040617
  27. PROMETHAZINE [Concomitant]
     Dosage: 25 MG
     Dates: start: 20010417
  28. IMITREX [Concomitant]
     Dosage: 50 MG
     Dates: start: 20050506
  29. OXYCODONE HCL AND ACETAMINOPHEN [Concomitant]
     Dosage: 5/325 MG
     Dates: start: 20050606
  30. DIAZEPAM [Concomitant]
     Dosage: 5 MG
     Dates: start: 20050606
  31. METHYLPREDNISOLONE 4MG TAB [Concomitant]
     Dosage: 4 MG
     Dates: start: 20050412
  32. XOPENEX [Concomitant]
     Dosage: 1.25 MG, TWO TIMES A DAY, THREE TIMES A DAY
     Dates: start: 20050412
  33. ADVAIR DISKUS 100/50 [Concomitant]
     Dosage: 250/50, TWO TIMES A DAY
     Dates: start: 20050616
  34. NEXIUM [Concomitant]
     Route: 065
     Dates: start: 20050822
  35. THIORIDAZINE HCL [Concomitant]
     Dosage: 25 MG TO 50 MG
     Dates: start: 20050824
  36. DITROPAN [Concomitant]
     Dates: start: 20050823
  37. TOPAMAX [Concomitant]
     Dosage: 50 MG TO 300 MG
     Dates: start: 20050927
  38. BENZONATATE [Concomitant]
     Dosage: 100 MG, 200 MG
     Dates: start: 20041214
  39. KETOROLAC TROMETHAMINE [Concomitant]
     Dosage: 10 MG
     Dates: start: 20060420
  40. SPIRIVA [Concomitant]
     Dosage: 18 MCG, EVERYDAY
     Dates: start: 20051008
  41. EFFEXOR XR [Concomitant]
     Dosage: 150 MG
     Dates: start: 20060516
  42. FLEXERIL [Concomitant]
     Dosage: 5 MG TO 60 MG
     Dates: start: 20030902
  43. LYRICA [Concomitant]
     Dosage: 50 MG TO 75 MG
     Dates: start: 20060804
  44. COMBIVENT [Concomitant]
     Dosage: 2 PUFFS FOUR TIMES A DAY
     Dates: start: 20031127
  45. HYDROCORTISONE [Concomitant]
     Dosage: 1.0 PERCENT
     Dates: start: 20060619
  46. METHOCARBAMOL [Concomitant]
     Dosage: 750 MG
     Dates: start: 20031015
  47. HYDROCODONE BT-IBUPROFEN [Concomitant]
     Dates: start: 20050913
  48. PROTONIX [Concomitant]
     Route: 048
     Dates: start: 20010503
  49. NORTRIPTYLINE HCL [Concomitant]
     Dosage: 25 MG
     Dates: start: 20010723
  50. CYMBALTA [Concomitant]
     Dates: start: 20060618
  51. XANAX [Concomitant]
     Dates: start: 20060618
  52. DURAGESIC-100 [Concomitant]
     Dosage: EVERY 72 HOURS
     Dates: start: 20060718

REACTIONS (5)
  - DIABETIC NEUROPATHY [None]
  - HYPERGLYCAEMIA [None]
  - HYPOGLYCAEMIA [None]
  - TYPE 1 DIABETES MELLITUS [None]
  - TYPE 2 DIABETES MELLITUS [None]
